FAERS Safety Report 10155471 (Version 3)
Quarter: 2014Q2

REPORT INFORMATION
  Report Type: Spontaneous
  Country: JP (occurrence: JP)
  Receive Date: 20140506
  Receipt Date: 20140529
  Transmission Date: 20141212
  Serious: Yes (Death, Other)
  Sender: FDA-Public Use
  Company Number: JP-JNJFOC-20140101289

PATIENT
  Age: 43 Year
  Sex: Female
  Weight: 50 kg

DRUGS (12)
  1. LEUSTATIN [Suspect]
     Indication: SYSTEMIC MASTOCYTOSIS
     Dosage: FOR 5 CONSECUTIVE DAY
     Route: 041
     Dates: start: 20110825, end: 20110829
  2. NOVAMIN [Concomitant]
     Indication: GASTRITIS EROSIVE
     Route: 048
     Dates: start: 20110723, end: 20110904
  3. TALION [Concomitant]
     Indication: URTICARIA
     Route: 048
     Dates: start: 20110723, end: 20110904
  4. DECADRON [Concomitant]
     Indication: TUMOUR ASSOCIATED FEVER
     Route: 041
     Dates: start: 20110826, end: 20110829
  5. VANCOMYCIN HYDROCHLORIDE [Concomitant]
     Indication: BACTERAEMIA
     Route: 041
     Dates: start: 20110822, end: 20110825
  6. DASATINIB [Concomitant]
     Indication: SYSTEMIC MASTOCYTOSIS
     Route: 048
  7. TEICOPLANIN [Concomitant]
     Indication: BACTERAEMIA
     Route: 041
     Dates: start: 20110827, end: 20110831
  8. TEICOPLANIN [Concomitant]
     Indication: BACTERAEMIA
     Route: 041
     Dates: start: 20110824, end: 20110825
  9. MUCOSTA [Concomitant]
     Indication: GASTRITIS EROSIVE
     Route: 048
     Dates: start: 20110723, end: 20110904
  10. LASIX [Concomitant]
     Indication: CARDIAC FAILURE CONGESTIVE
     Route: 048
     Dates: start: 20110730, end: 20110904
  11. TAKEPRON [Concomitant]
     Indication: GASTRIC ULCER
     Route: 048
     Dates: start: 20110730, end: 20110904
  12. BAKTAR [Concomitant]
     Indication: BRONCHITIS CHRONIC
     Route: 048
     Dates: start: 20110726, end: 20110904

REACTIONS (6)
  - Septic shock [Fatal]
  - Mastocytoma [Fatal]
  - White blood cell count decreased [Not Recovered/Not Resolved]
  - Neutrophil count decreased [Not Recovered/Not Resolved]
  - Off label use [Unknown]
  - Drug ineffective [Unknown]
